FAERS Safety Report 19146208 (Version 1)
Quarter: 2021Q2

REPORT INFORMATION
  Report Type: Spontaneous
  Country: US (occurrence: US)
  Receive Date: 20210416
  Receipt Date: 20210416
  Transmission Date: 20210717
  Serious: Yes (Other)
  Sender: FDA-Public Use
  Company Number: US-TEVA-2021-US-1901327

PATIENT
  Sex: Male

DRUGS (7)
  1. COPAXONE [Suspect]
     Active Substance: GLATIRAMER ACETATE
     Indication: MULTIPLE SCLEROSIS
     Dosage: FORM STRENGTH: UNKNOWN
     Route: 065
  2. VITAMIN D [Concomitant]
     Active Substance: VITAMIN D NOS
  3. OCREVUS [Concomitant]
     Active Substance: OCRELIZUMAB
  4. LYSINE [Concomitant]
     Active Substance: LYSINE
  5. MEN^S DAILY MULTIVITAMIN [Concomitant]
  6. COLLAGEN SUPPLEMENT [Concomitant]
  7. FLAXSEED [Concomitant]
     Active Substance: FLAX SEED

REACTIONS (1)
  - Multiple sclerosis [Unknown]
